FAERS Safety Report 5411947-1 (Version None)
Quarter: 2007Q3

REPORT INFORMATION
  Report Type: 
  Country: None (occurrence: None)
  Receive Date: 20070813
  Receipt Date: 20070801
  Transmission Date: 20080115
  Serious: Yes (Other)
  Sender: FDA-Public Use
  Company Number: JP-ELI_LILLY_AND_COMPANY-JP200708001541

PATIENT
  Age: 71 Year
  Sex: Male

DRUGS (3)
  1. GEMZAR [Suspect]
     Indication: LUNG SQUAMOUS CELL CARCINOMA STAGE III
  2. VINORELBINE [Concomitant]
     Indication: LUNG SQUAMOUS CELL CARCINOMA STAGE III
     Route: 042
  3. THERAPEUTIC RADIOPHARMACEUTICALS [Concomitant]
     Indication: LUNG SQUAMOUS CELL CARCINOMA STAGE III

REACTIONS (2)
  - CRYPTOGENIC ORGANISING PNEUMONIA [None]
  - RADIATION PNEUMONITIS [None]
